FAERS Safety Report 21511336 (Version 2)
Quarter: 2023Q1

REPORT INFORMATION
  Report Type: Report from Study
  Country: AR (occurrence: AR)
  Receive Date: 20221027
  Receipt Date: 20230111
  Transmission Date: 20230417
  Serious: Yes (Other)
  Sender: FDA-Public Use
  Company Number: AR-TAKEDA-2022TUS077647

PATIENT
  Age: 11 Year
  Sex: Male

DRUGS (4)
  1. IDURSULFASE [Suspect]
     Active Substance: IDURSULFASE
     Indication: Enzyme supplementation
     Dosage: 1 DOSAGE FORM, 1/WEEK
     Route: 042
     Dates: start: 20180904
  2. SPIRONOLACTONE [Concomitant]
     Active Substance: SPIRONOLACTONE
     Dosage: 2.5 MILLIGRAM, Q12H
     Route: 065
     Dates: start: 20230101
  3. DESLORATADINE [Concomitant]
     Active Substance: DESLORATADINE
     Indication: Premedication
     Dosage: 2.5 MILLIGRAM
     Route: 048
  4. LIDOCAINE [Concomitant]
     Active Substance: LIDOCAINE
     Indication: Premedication
     Dosage: UNK
     Route: 061

REACTIONS (1)
  - Cardiac disorder [Not Recovered/Not Resolved]

NARRATIVE: CASE EVENT DATE: 20221018
